FAERS Safety Report 9168073 (Version 1)
Quarter: 2013Q1

REPORT INFORMATION
  Report Type: Spontaneous
  Country: GB (occurrence: None)
  Receive Date: 20130305
  Receipt Date: 20130305
  Transmission Date: 20140127
  Serious: Yes (Hospitalization)
  Sender: FDA-Public Use
  Company Number: AUR-APL-2013-01748

PATIENT
  Age: 51 Year
  Sex: 0

DRUGS (11)
  1. RIBAVIRIN [Suspect]
     Indication: HEPATITIS C
     Dosage: 1200 MG (600 MG, 2 IN 1 D), UNKNOWN
     Dates: start: 20121218
  2. PEGINTERFERON ALFA-2A [Suspect]
     Indication: HEPATITIS C
     Dosage: 180 MCG, 1 IN 1 WK
     Dates: start: 20121218
  3. TELAPREVIR (TELAPREVIR) [Suspect]
     Indication: HEPATITIS C
     Dosage: 750 MG (750 MG, 1 IN 1 D)
     Dates: start: 20121218
  4. CITALOPRAM (CITALOPRAM) [Concomitant]
  5. DIHYDROCODEINE (DIHYDROCODEINE) [Concomitant]
  6. FERROUS SULPHATE (FERROUS SULFATE) [Concomitant]
  7. GABAPENTIN (GABAPENTIN) [Concomitant]
  8. OMEPRAZOLE (OMEPRAZOLE) [Concomitant]
  9. PROPRANOLOL (PROPRANOLOL) [Concomitant]
  10. THIAMINE (THIAMINE) [Concomitant]
  11. VITAMIN B SUBSTANCES (CYANOCOBALAMIN) [Concomitant]

REACTIONS (8)
  - Thrombocytopenia [None]
  - Hepatic cirrhosis [None]
  - Lethargy [None]
  - Fatigue [None]
  - Decreased appetite [None]
  - Cough [None]
  - Nausea [None]
  - Vomiting [None]
